FAERS Safety Report 8774155 (Version 2)
Quarter: 2012Q4

REPORT INFORMATION
  Report Type: 
  Country: DE (occurrence: DE)
  Receive Date: 20120907
  Receipt Date: 20121001
  Transmission Date: 20130627
  Serious: No
  Sender: FDA-Public Use
  Company Number: PHHY2012DE075920

PATIENT
  Sex: Female

DRUGS (3)
  1. GILENYA [Suspect]
     Indication: RELAPSING-REMITTING MULTIPLE SCLEROSIS
     Dosage: 0.5 mg, QD
     Route: 048
     Dates: start: 201204, end: 201208
  2. CITALOPRAM [Concomitant]
     Indication: DEPRESSED MOOD
     Dosage: 10 mg, QD
     Route: 048
     Dates: start: 2008
  3. MODAFINIL [Concomitant]
     Indication: FATIGUE
     Dosage: 100 mg, QD
     Dates: start: 2010

REACTIONS (4)
  - Yellow skin [Recovering/Resolving]
  - Decreased appetite [Recovering/Resolving]
  - Fatigue [Unknown]
  - Platelet count increased [Unknown]
